FAERS Safety Report 10039454 (Version 1)
Quarter: 2014Q1

REPORT INFORMATION
  Report Type: Spontaneous
  Country: US (occurrence: None)
  Receive Date: 20140306
  Receipt Date: 20140306
  Transmission Date: 20141002
  Serious: Yes (Other)
  Sender: FDA-Public Use
  Company Number: 163-21880-13033566

PATIENT
  Age: 72 Year
  Sex: Female

DRUGS (9)
  1. REVLIMID [Suspect]
     Indication: PLASMA CELL MYELOMA
     Dosage: 10 MG, 21 IN 21 D, PO  02/24/2012 - TEMP. INTERRUPTED
     Route: 048
     Dates: start: 20120224
  2. AMLODIPINE BESY-BENAZEPRIL HCL (AMLODIPINE BESYLATE W/ BENAZEPRIL HYDROCHLOR.) [Concomitant]
  3. ASPIRINE (ACETYLSALICYLIC ACID) [Concomitant]
  4. CALCIUM (CALCIUM) [Concomitant]
  5. CITALOPRAM HYDROBROMIDE [Concomitant]
  6. GABAPENTIN (GABAPENTIN) [Concomitant]
  7. LOTREL (LOTREL) [Concomitant]
  8. METFORMIN HCL (METFORMIN HYDROCHLOIRIDE) [Concomitant]
  9. TRICOR (FENOFIBRATE) [Concomitant]

REACTIONS (1)
  - Diverticulitis [None]
